FAERS Safety Report 6877619-1 (Version None)
Quarter: 2010Q3

REPORT INFORMATION
  Report Type: 
  Country: None (occurrence: None)
  Receive Date: 20100727
  Receipt Date: 20100415
  Transmission Date: 20110219
  Serious: No
  Sender: FDA-Public Use
  Company Number: US-ABBOTT-10P-163-0639531-00

PATIENT
  Sex: Female
  Weight: 68.1 kg

DRUGS (5)
  1. SYNTHROID [Suspect]
     Indication: HYPOTHYROIDISM
     Dates: start: 19980101, end: 19980101
  2. SYNTHROID [Suspect]
     Dates: start: 20090101, end: 20090101
  3. OXYCODONE [Concomitant]
     Indication: ARTHRITIS
  4. OXYCODONE [Concomitant]
     Indication: FIBROMYALGIA
  5. ALLOPURINOL [Concomitant]
     Indication: GOUT

REACTIONS (1)
  - MOOD SWINGS [None]
